FAERS Safety Report 22320525 (Version 1)
Quarter: 2023Q2

REPORT INFORMATION
  Report Type: Spontaneous
  Country: US (occurrence: None)
  Receive Date: 20230512
  Receipt Date: 20230512
  Transmission Date: 20230722
  Serious: Yes (Hospitalization)
  Sender: FDA-Public Use
  Company Number: None

PATIENT
  Age: 67 Year
  Sex: Female
  Weight: 62.1 kg

DRUGS (2)
  1. NIVOLUMAB [Suspect]
     Active Substance: NIVOLUMAB
  2. IPILIMUMAB [Suspect]
     Active Substance: IPILIMUMAB

REACTIONS (1)
  - Pneumonia [None]

NARRATIVE: CASE EVENT DATE: 20230508
